FAERS Safety Report 23510777 (Version 1)
Quarter: 2024Q1

REPORT INFORMATION
  Report Type: Spontaneous
  Country: US (occurrence: US)
  Receive Date: 20240212
  Receipt Date: 20240212
  Transmission Date: 20240410
  Serious: Yes (Hospitalization, Other)
  Sender: FDA-Public Use
  Company Number: US-DRL-USA-LIT/USA/24/0001953

PATIENT
  Age: 45 Year
  Sex: Male

DRUGS (3)
  1. CAPECITABINE [Suspect]
     Active Substance: CAPECITABINE
     Indication: Pancreatic neuroendocrine tumour
  2. TEMOZOLOMIDE [Concomitant]
     Active Substance: TEMOZOLOMIDE
     Indication: Pancreatic neuroendocrine tumour
  3. LANREOTIDE [Concomitant]
     Active Substance: LANREOTIDE
     Indication: Pancreatic neuroendocrine tumour

REACTIONS (1)
  - Arteriospasm coronary [Recovered/Resolved]
